FAERS Safety Report 6022019-X (Version None)
Quarter: 2008Q4

REPORT INFORMATION
  Report Type: 
  Country: None (occurrence: None)
  Receive Date: 20081229
  Receipt Date: 20081219
  Transmission Date: 20090506
  Serious: Yes (Death)
  Sender: FDA-Public Use
  Company Number: CO-PFIZER INC-2008159123

PATIENT

DRUGS (4)
  1. LIPITOR [Suspect]
     Indication: HYPERLIPIDAEMIA
     Dosage: 10 MG, 1X/DAY
     Route: 048
     Dates: start: 20040923
  2. VERAPAMIL HYDROCHLORIDE [Concomitant]
     Dosage: 120 UNK, 2X/DAY
  3. HYDROCHLOROTHIAZIDE [Concomitant]
     Dosage: UNK
  4. ASPIRIN [Concomitant]

REACTIONS (2)
  - DEATH [None]
  - HYPOPHAGIA [None]
